FAERS Safety Report 5826495-4 (Version None)
Quarter: 2008Q3

REPORT INFORMATION
  Report Type: 
  Country: None (occurrence: None)
  Receive Date: 20080724
  Receipt Date: 20080715
  Transmission Date: 20090109
  Serious: Yes (Hospitalization)
  Sender: FDA-Public Use
  Company Number: 19750

PATIENT
  Age: 74 Year
  Sex: Female

DRUGS (15)
  1. LEUCOVORIN CALCIUM [Suspect]
     Dates: start: 20080602, end: 20080602
  2. LEUCOVORIN CALCIUM [Suspect]
     Dates: start: 20080616, end: 20080616
  3. ELOXATIN [Suspect]
     Indication: COLON CANCER METASTATIC
     Dosage: 85 MG/M2 PER_ CYCLE IV
     Dates: start: 20080602, end: 20080602
  4. ELOXATIN [Suspect]
     Indication: COLON CANCER METASTATIC
     Dosage: 85 MG/M2 PER_ CYCLE IV
     Dates: start: 20080616, end: 20080616
  5. AVASTIN [Suspect]
     Dates: start: 20080602, end: 20080602
  6. AVASTIN [Suspect]
     Dates: start: 20080616, end: 20080616
  7. LOTREL [Concomitant]
  8. TRIAMTERENE [Concomitant]
  9. PROTONIX  101263201/ [Concomitant]
  10. FERROUS SULFATE TAB [Concomitant]
  11. TYLENOL W/ CODEINE NO. 3 [Concomitant]
  12. 5-FLUOROURACIL  CLINI [Concomitant]
  13. CLINICAL TRIAL MEDICATION [Concomitant]
  14. ERBITUX [Concomitant]
  15. COUMADIN [Concomitant]

REACTIONS (3)
  - ABDOMINAL PAIN [None]
  - FLUSHING [None]
  - MUSCULOSKELETAL PAIN [None]
